FAERS Safety Report 5205820-1 (Version None)
Quarter: 2007Q1

REPORT INFORMATION
  Report Type: 
  Country: None (occurrence: None)
  Receive Date: 20070105
  Receipt Date: 20070105
  Transmission Date: 20070707
  Serious: No
  Sender: FDA-Public Use
  Company Number: None

PATIENT
  Age: 52 Year
  Sex: Male
  Weight: 81.6475 kg

DRUGS (2)
  1. FLUTICASONE PROPIONATE    50 MCG       BOEHRINGER INGELHEIM/ROXANE [Suspect]
     Indication: HYPERSENSITIVITY
     Dosage: 4 METERED SPRAYS -TWICE A DAY-    INHAL
     Route: 055
     Dates: start: 20061101, end: 20061231
  2. FLUTICASONE PROPIONATE   50 MCG      BOEHRINGER INGELHEIM/ROXANE [Suspect]

REACTIONS (1)
  - PHARMACEUTICAL PRODUCT COMPLAINT [None]
